FAERS Safety Report 7375252-9 (Version None)
Quarter: 2011Q1

REPORT INFORMATION
  Report Type: 
  Country: None (occurrence: None)
  Receive Date: 20110325
  Receipt Date: 20110322
  Transmission Date: 20110831
  Serious: Yes (Other)
  Sender: FDA-Public Use
  Company Number: GB-PFIZER INC-2011062822

PATIENT
  Age: 55 Year
  Sex: Female

DRUGS (1)
  1. LYRICA [Suspect]
     Indication: NEURALGIA
     Dosage: 75 MG, 2X/DAY
     Dates: start: 20110202, end: 20110101

REACTIONS (5)
  - DIARRHOEA [None]
  - VOMITING [None]
  - HAEMATEMESIS [None]
  - MALAISE [None]
  - GASTRIC DILATATION [None]
